FAERS Safety Report 19043834 (Version 1)
Quarter: 2021Q1

REPORT INFORMATION
  Report Type: Report from Study
  Country: TW (occurrence: TW)
  Receive Date: 20210323
  Receipt Date: 20210323
  Transmission Date: 20210420
  Serious: Yes (Other)
  Sender: FDA-Public Use
  Company Number: TW-MYLANLABS-2021M1017608

PATIENT
  Age: 74 Year
  Sex: Female

DRUGS (3)
  1. GEMCITABINE. [Suspect]
     Active Substance: GEMCITABINE
     Indication: ADENOCARCINOMA PANCREAS
     Dosage: 800 MILLIGRAM/SQ. METER, CYCLE AT A RATE OF 10 MG/M2/MIN ON DAY 1
     Route: 042
     Dates: start: 201812, end: 201910
  2. LEUCOVORIN                         /00566701/ [Suspect]
     Active Substance: LEUCOVORIN
     Indication: ADENOCARCINOMA PANCREAS
     Dosage: 30 MILLIGRAM, BID ON DAYS 1?7
     Route: 048
     Dates: start: 201812, end: 201910
  3. TS?1 [Suspect]
     Active Substance: GIMERACIL\OTERACIL\TEGAFUR
     Indication: ADENOCARCINOMA PANCREAS
     Dosage: UNK, QD DOSE: 80?120 MG/DAY BASED..
     Route: 048
     Dates: start: 201812, end: 201910

REACTIONS (3)
  - Thrombocytopenia [Unknown]
  - Mucosal inflammation [Unknown]
  - Anaemia [Unknown]
